FAERS Safety Report 8290171-1 (Version None)
Quarter: 2012Q2

REPORT INFORMATION
  Report Type: 
  Country: None (occurrence: None)
  Receive Date: 20120417
  Receipt Date: 20120412
  Transmission Date: 20120825
  Serious: Yes (Other)
  Sender: FDA-Public Use
  Company Number: US-PFIZER INC-2011304071

PATIENT
  Sex: Female
  Weight: 47.166 kg

DRUGS (15)
  1. CLONAZEPAM [Concomitant]
     Dosage: 0.5 MG, UNK
  2. VITAMIN D [Concomitant]
     Dosage: 2000 IU, UNK
  3. BENZTROPEINE [Concomitant]
     Dosage: 0.5 MG, UNK
  4. RISPERDAL [Concomitant]
     Dosage: 0.5 MG, UNK
  5. ALPHA LIPOIC ACID [Concomitant]
     Dosage: 50 MG, UNK
  6. PRAVASTATIN [Concomitant]
     Dosage: 40 MG, UNK
  7. LOVAZA [Concomitant]
     Dosage: 1 G, UNK
  8. LEVOXYL [Concomitant]
     Dosage: 100 UG, UNK
  9. CHOLINE BITARTRATE [Concomitant]
     Dosage: 250 MG, UNK
  10. GENOTROPIN [Suspect]
     Dosage: 0.4 MG, 1X/DAY
     Route: 058
  11. ESTRADIOL [Concomitant]
     Dosage: 0.05 MG, UNK
  12. CALCIUM MAGNESIUM [Concomitant]
     Dosage: UNK
  13. GENOTROPIN [Suspect]
     Dosage: 0.6 MG, 1X/DAY
     Route: 058
  14. AMBIEN [Concomitant]
     Dosage: 10 MG, UNK
  15. SAVELLA [Concomitant]
     Dosage: 50 MG, UNK

REACTIONS (8)
  - WEIGHT DECREASED [None]
  - DEPRESSION [None]
  - NAUSEA [None]
  - BALANCE DISORDER [None]
  - HEADACHE [None]
  - NERVOUSNESS [None]
  - ANXIETY [None]
  - FATIGUE [None]
